FAERS Safety Report 8206841-7 (Version None)
Quarter: 2012Q1

REPORT INFORMATION
  Report Type: 
  Country: None (occurrence: None)
  Receive Date: 20120314
  Receipt Date: 20120305
  Transmission Date: 20120608
  Serious: Yes (Hospitalization)
  Sender: FDA-Public Use
  Company Number: US-ELI_LILLY_AND_COMPANY-US201203001570

PATIENT

DRUGS (2)
  1. HUMATROPE [Suspect]
     Dosage: 0.24 MG, QD
  2. HUMATROPE [Suspect]
     Dosage: UNK, UNKNOWN

REACTIONS (1)
  - HOSPITALISATION [None]
